FAERS Safety Report 23169401 (Version 1)
Quarter: 2023Q4

REPORT INFORMATION
  Report Type: Spontaneous
  Country: CN (occurrence: CN)
  Receive Date: 20231110
  Receipt Date: 20231110
  Transmission Date: 20240110
  Serious: Yes (Other)
  Sender: FDA-Public Use
  Company Number: None

PATIENT
  Age: 14 Year
  Sex: Male
  Weight: 49 kg

DRUGS (4)
  1. IFOSFAMIDE [Suspect]
     Active Substance: IFOSFAMIDE
     Indication: Brain neoplasm malignant
     Dosage: 1 G, ONE TIME IN ONE DAY (Q3W), D1-4
     Route: 041
     Dates: start: 20220430, end: 20220503
  2. MESNA [Suspect]
     Active Substance: MESNA
     Indication: Brain neoplasm malignant
     Dosage: 0.2  MG,(IFO 0, 4, 8 HOURS), Q3W, D1-4
     Route: 065
     Dates: start: 20230430, end: 20230503
  3. ETOPOSIDE [Suspect]
     Active Substance: ETOPOSIDE
     Indication: Brain neoplasm malignant
     Dosage: 0.1 G, ONE TIME IN ONE DAY, (Q3W) (VP-16, D1-3)
     Route: 041
     Dates: start: 20220430, end: 20220502
  4. CISPLATIN [Suspect]
     Active Substance: CISPLATIN
     Indication: Brain neoplasm malignant
     Dosage: 20 MG, ONE TIME IN ONE DAY (Q3W) (DDP D1-4 EVERY 3 WEEK)
     Route: 041
     Dates: start: 20220430, end: 20220503

REACTIONS (5)
  - Myelosuppression [Recovering/Resolving]
  - Pyrexia [Recovering/Resolving]
  - White blood cell count decreased [Recovering/Resolving]
  - Platelet count decreased [Recovering/Resolving]
  - Haemoglobin decreased [Recovering/Resolving]

NARRATIVE: CASE EVENT DATE: 20220530
